FAERS Safety Report 9671903 (Version 2)
Quarter: 2013Q4

REPORT INFORMATION
  Report Type: Spontaneous
  Country: GB (occurrence: GB)
  Receive Date: 20131106
  Receipt Date: 20131126
  Transmission Date: 20140711
  Serious: Yes (Life-Threatening, Hospitalization, Other)
  Sender: FDA-Public Use
  Company Number: GB-TEVA-440848ISR

PATIENT
  Age: 65 Year
  Sex: Female

DRUGS (12)
  1. CANDESARTAN [Suspect]
     Indication: HYPERTENSION
     Dosage: 16 MILLIGRAM DAILY;
     Route: 048
     Dates: end: 20120804
  2. METFORMIN [Suspect]
     Indication: TYPE 2 DIABETES MELLITUS
     Route: 048
     Dates: end: 20120804
  3. FUROSEMIDE [Suspect]
     Indication: HYPERTENSION
     Dosage: 40MG
     Route: 048
     Dates: end: 20120804
  4. CELECOXIB [Suspect]
     Indication: ANALGESIC THERAPY
     Route: 048
     Dates: end: 20120804
  5. VITAMINS NOS [Concomitant]
  6. MIRTAZAPINE [Concomitant]
  7. VENLAFAXINE [Concomitant]
  8. CLONAZEPAM [Concomitant]
  9. RANITIDINE [Concomitant]
  10. GABAPENTIN [Concomitant]
  11. SITAGLIPTIN [Concomitant]
  12. STATIN [Concomitant]

REACTIONS (6)
  - Renal failure acute [Recovered/Resolved]
  - Dehydration [Recovered/Resolved]
  - Condition aggravated [Recovered/Resolved]
  - Malaise [Unknown]
  - Diarrhoea [Unknown]
  - Vomiting [Unknown]
